FAERS Safety Report 23970953 (Version 2)
Quarter: 2024Q2

REPORT INFORMATION
  Report Type: Other
  Country: JP (occurrence: JP)
  Receive Date: 20240613
  Receipt Date: 20240625
  Transmission Date: 20240715
  Serious: Yes (Hospitalization)
  Sender: FDA-Public Use
  Company Number: JP-ALVOGEN-2024094805

PATIENT
  Age: 11 Year
  Sex: Male
  Weight: 26.2 kg

DRUGS (1)
  1. DOXORUBICIN [Suspect]
     Active Substance: DOXORUBICIN
     Indication: Ewing^s sarcoma
     Dosage: HIGH-DOSE CHEMOTHERAPY

REACTIONS (2)
  - Ischaemic stroke [Recovering/Resolving]
  - Cardiac dysfunction [Recovering/Resolving]
